FAERS Safety Report 8960790 (Version 1)
Quarter: 2012Q4

REPORT INFORMATION
  Report Type: 
  Country: US (occurrence: US)
  Receive Date: 20121213
  Receipt Date: 20121213
  Transmission Date: 20130627
  Serious: Yes (Other)
  Sender: FDA-Public Use
  Company Number: US-AMGEN-USASP2012079306

PATIENT
  Sex: Male

DRUGS (2)
  1. SENSIPAR [Suspect]
     Indication: HYPERPARATHYROIDISM SECONDARY
     Dosage: 60 mg, qd
  2. CALCIUM [Concomitant]

REACTIONS (3)
  - Lung disorder [Unknown]
  - Fear of death [Unknown]
  - Blood calcium abnormal [Unknown]
